FAERS Safety Report 25657490 (Version 1)
Quarter: 2025Q3

REPORT INFORMATION
  Report Type: Spontaneous
  Country: EU (occurrence: EU)
  Receive Date: 20250808
  Receipt Date: 20250808
  Transmission Date: 20251021
  Serious: Yes (Other)
  Sender: GALDERMA
  Company Number: EU-GALDERMA-PL2025014339

PATIENT

DRUGS (17)
  1. DOXYCYCLINE [Suspect]
     Active Substance: DOXYCYCLINE
     Indication: Product used for unknown indication
     Route: 065
  2. DOXEPIN [Concomitant]
     Active Substance: DOXEPIN
     Indication: Mental disorder
  3. SULPIRIDE [Concomitant]
     Active Substance: SULPIRIDE
     Indication: Mental disorder
  4. HYDROXYZINE [Concomitant]
     Active Substance: HYDROXYZINE HYDROCHLORIDE
     Indication: Mental disorder
  5. ESCITALOPRAM [Concomitant]
     Active Substance: ESCITALOPRAM OXALATE
     Indication: Mental disorder
     Dates: start: 2006
  6. AGOMELATINE [Concomitant]
     Active Substance: AGOMELATINE
     Indication: Mental impairment
     Route: 065
  7. PREGABALIN [Concomitant]
     Active Substance: PREGABALIN
     Indication: Mental impairment
     Route: 065
     Dates: start: 202009
  8. PREGABALIN [Concomitant]
     Active Substance: PREGABALIN
     Route: 065
  9. PREGABALIN [Concomitant]
     Active Substance: PREGABALIN
     Route: 065
  10. PREGABALIN [Concomitant]
     Active Substance: PREGABALIN
     Dates: end: 202009
  11. FLUOXETINE [Concomitant]
     Active Substance: FLUOXETINE HYDROCHLORIDE
     Indication: Product used for unknown indication
  12. TRAZODONE [Concomitant]
     Active Substance: TRAZODONE HYDROCHLORIDE
     Indication: Product used for unknown indication
  13. CHLORPROTHIXENE [Concomitant]
     Active Substance: CHLORPROTHIXENE
     Indication: Product used for unknown indication
  14. NEBIVOLOL [Concomitant]
     Active Substance: NEBIVOLOL
     Indication: Hypertension
  15. NEBIVOLOL [Concomitant]
     Active Substance: NEBIVOLOL
  16. AMLODIPINE [Concomitant]
     Active Substance: AMLODIPINE BESYLATE
     Indication: Hypertension
  17. AMLODIPINE [Concomitant]
     Active Substance: AMLODIPINE BESYLATE

REACTIONS (4)
  - Anaphylactic reaction [Unknown]
  - Enuresis [Unknown]
  - Sedation complication [Unknown]
  - Hepatic enzyme increased [Unknown]
